FAERS Safety Report 10464112 (Version 2)
Quarter: 2014Q4

REPORT INFORMATION
  Report Type: Spontaneous
  Country: CA (occurrence: None)
  Receive Date: 20140917
  Receipt Date: 20141008
  Transmission Date: 20150528
  Serious: Yes (Life-Threatening)
  Sender: FDA-Public Use
  Company Number: 2014-002707

PATIENT
  Age: 34 Year
  Sex: Female
  Weight: 61 kg

DRUGS (8)
  1. VITAMIN B12 [Concomitant]
     Active Substance: CYANOCOBALAMIN
  2. LOESTRIN NOS [Suspect]
     Active Substance: ETHINYL ESTRADIOL\NORETHINDRONE ACETATE
     Indication: DYSMENORRHOEA
     Route: 048
     Dates: start: 20130325, end: 20130624
  3. VITAMIN B6 [Concomitant]
     Active Substance: PYRIDOXINE HYDROCHLORIDE
  4. LOESTRIN NOS [Suspect]
     Active Substance: ETHINYL ESTRADIOL\NORETHINDRONE ACETATE
     Indication: MENOMETRORRHAGIA
     Route: 048
     Dates: start: 20130325, end: 20130624
  5. LOESTRIN NOS [Suspect]
     Active Substance: ETHINYL ESTRADIOL\NORETHINDRONE ACETATE
     Indication: OVARIAN CYST
     Route: 048
     Dates: start: 20130325, end: 20130624
  6. LOESTRIN NOS [Suspect]
     Active Substance: ETHINYL ESTRADIOL\NORETHINDRONE ACETATE
     Indication: PELVIC PAIN
     Route: 048
     Dates: start: 20130325, end: 20130624
  7. VITAMIN D (COLECALCIFEROL) [Concomitant]
  8. FOLIC ACID. [Concomitant]
     Active Substance: FOLIC ACID

REACTIONS (6)
  - Migraine with aura [None]
  - Hypoaesthesia [None]
  - Cerebral artery embolism [None]
  - Paraesthesia oral [None]
  - Tension headache [None]
  - Visual impairment [None]

NARRATIVE: CASE EVENT DATE: 20130524
